FAERS Safety Report 8922502 (Version 3)
Quarter: 2013Q1

REPORT INFORMATION
  Report Type: Spontaneous
  Country: US (occurrence: US)
  Receive Date: 20121126
  Receipt Date: 20130306
  Transmission Date: 20140127
  Serious: No
  Sender: FDA-Public Use
  Company Number: US-009507513-1211USA002487

PATIENT
  Sex: Female
  Weight: 90.7 kg

DRUGS (2)
  1. ASMANEX TWISTHALER [Suspect]
     Indication: ASTHMA
     Dosage: INHALER, 1 PUFF, QD
     Route: 055
     Dates: start: 200711
  2. VITAMINS (UNSPECIFIED) [Concomitant]

REACTIONS (3)
  - Dyspnoea [Recovered/Resolved]
  - Product quality issue [Unknown]
  - Bronchospasm [Recovering/Resolving]
